FAERS Safety Report 22159985 (Version 1)
Quarter: 2023Q1

REPORT INFORMATION
  Report Type: Spontaneous
  Country: JP (occurrence: JP)
  Receive Date: 20230331
  Receipt Date: 20230331
  Transmission Date: 20230418
  Serious: Yes (Hospitalization, Other)
  Sender: FDA-Public Use
  Company Number: JP-UCBJ-CD202302948UCBPHAPROD

PATIENT
  Age: 9 Month
  Sex: Male

DRUGS (1)
  1. LEVETIRACETAM [Suspect]
     Active Substance: LEVETIRACETAM
     Indication: Tonic convulsion
     Dosage: UNK
     Route: 042

REACTIONS (7)
  - Eye movement disorder [Recovered/Resolved]
  - Tonic convulsion [Recovered/Resolved]
  - Intracranial pressure increased [Recovered/Resolved]
  - Encephalopathy [Recovered/Resolved]
  - Papilloedema [Recovered/Resolved]
  - Retinal haemorrhage [Recovered/Resolved]
  - Off label use [Unknown]
